FAERS Safety Report 9688344 (Version 1)
Quarter: 2013Q4

REPORT INFORMATION
  Report Type: Spontaneous
  Country: US (occurrence: None)
  Receive Date: 20131113
  Receipt Date: 20131113
  Transmission Date: 20140711
  Serious: Yes (Other)
  Sender: FDA-Public Use
  Company Number: None

PATIENT
  Sex: Male
  Weight: 86.18 kg

DRUGS (1)
  1. TERAZOSIN HCL [Suspect]
     Indication: PROSTATIC DISORDER
     Dates: end: 201006

REACTIONS (7)
  - Mood altered [None]
  - Screaming [None]
  - Abnormal behaviour [None]
  - Personality change [None]
  - Therapy cessation [None]
  - Drug ineffective [None]
  - Job dissatisfaction [None]
